FAERS Safety Report 6885574-3 (Version None)
Quarter: 2010Q3

REPORT INFORMATION
  Report Type: 
  Country: None (occurrence: None)
  Receive Date: 20100729
  Receipt Date: 20080321
  Transmission Date: 20110219
  Serious: No
  Sender: FDA-Public Use
  Company Number: US-PFIZER INC-2008026801

PATIENT
  Sex: Female
  Weight: 63.636 kg

DRUGS (16)
  1. CELEBREX [Suspect]
     Indication: POSTOPERATIVE CARE
     Dates: start: 20060701, end: 20080301
  2. LYRICA [Suspect]
     Indication: FIBROMYALGIA
     Dates: start: 20080101, end: 20080318
  3. OXYCODONE [Concomitant]
  4. LORAZEPAM [Concomitant]
  5. TRAZODONE [Concomitant]
  6. FLEXERIL [Concomitant]
  7. MONTELUKAST SODIUM [Concomitant]
  8. ACETYLSALICYLIC ACID SRT [Concomitant]
  9. PLAQUENIL [Concomitant]
  10. AVANDIA [Concomitant]
  11. CYMBALTA [Concomitant]
  12. COZAAR [Concomitant]
  13. PRILOSEC [Concomitant]
  14. VICODIN [Concomitant]
  15. PREDNISONE [Concomitant]
  16. ALL OTHER THERAPEUTIC PRODUCTS [Concomitant]

REACTIONS (5)
  - DRUG DOSE OMISSION [None]
  - EXTRASYSTOLES [None]
  - FATIGUE [None]
  - HEART RATE INCREASED [None]
  - PALPITATIONS [None]
